FAERS Safety Report 5992150-3 (Version None)
Quarter: 2008Q4

REPORT INFORMATION
  Report Type: 
  Country: None (occurrence: None)
  Receive Date: 20081202
  Receipt Date: 20080103
  Transmission Date: 20090506
  Serious: Yes (Other)
  Sender: FDA-Public Use
  Company Number: WAES 0706USA00971

PATIENT
  Age: 48 Year
  Sex: Female

DRUGS (3)
  1. FOSAMAX [Suspect]
     Indication: OSTEOPOROSIS
     Dosage: 70 MG/PO
     Route: 048
     Dates: start: 20030401, end: 20060401
  2. CORTICOSTEROIDS (UNSPECIFIED) [Concomitant]
  3. HORMONES (UNSPECIFIED) [Concomitant]

REACTIONS (4)
  - ABSCESS [None]
  - DENTAL CARIES [None]
  - OSTEONECROSIS [None]
  - TOOTH LOSS [None]
